FAERS Safety Report 24548307 (Version 2)
Quarter: 2024Q4

REPORT INFORMATION
  Report Type: Spontaneous
  Country: US (occurrence: US)
  Receive Date: 20241025
  Receipt Date: 20241127
  Transmission Date: 20250115
  Serious: Yes (Other)
  Sender: XERIS PHARMACEUTICALS
  Company Number: US-BRIAN CONNER SVP QUALITY AND CHIEF COMPLIANCE OFFICER-2024XER00417

PATIENT
  Sex: Female

DRUGS (2)
  1. RECORLEV [Suspect]
     Active Substance: LEVOKETOCONAZOLE
     Indication: Pituitary-dependent Cushing^s syndrome
     Dosage: 150 MG, 2X/DAY
     Dates: start: 20240422, end: 2024
  2. RECORLEV [Suspect]
     Active Substance: LEVOKETOCONAZOLE
     Dosage: 4 TABLETS (600 MG) A DAY
     Dates: start: 20241105

REACTIONS (7)
  - Systemic lupus erythematosus [Not Recovered/Not Resolved]
  - Blood pressure increased [Recovered/Resolved]
  - Feeling abnormal [Not Recovered/Not Resolved]
  - Swelling [Not Recovered/Not Resolved]
  - Sluggishness [Not Recovered/Not Resolved]
  - Neck pain [Not Recovered/Not Resolved]
  - Heart rate decreased [Unknown]

NARRATIVE: CASE EVENT DATE: 20240101
